FAERS Safety Report 18595863 (Version 1)
Quarter: 2020Q4

REPORT INFORMATION
  Report Type: Spontaneous
  Country: US (occurrence: US)
  Receive Date: 20201209
  Receipt Date: 20201209
  Transmission Date: 20210114
  Serious: Yes (Other)
  Sender: FDA-Public Use
  Company Number: US-SUPERNUS PHARMACEUTICALS, INC.-2019SUP00553

PATIENT
  Sex: Female
  Weight: 58.96 kg

DRUGS (9)
  1. TROKENDI XR [Suspect]
     Active Substance: TOPIRAMATE
     Indication: STRESS
     Dosage: 200 MG
     Dates: start: 20191205
  2. NEUROVITE PLUS [Concomitant]
  3. TROKENDI XR [Suspect]
     Active Substance: TOPIRAMATE
     Indication: EPILEPSY
  4. TOPIRAMATE. [Suspect]
     Active Substance: TOPIRAMATE
     Dosage: UNK
  5. MAGNESIUM [Concomitant]
     Active Substance: MAGNESIUM
  6. CRANBERRY. [Concomitant]
     Active Substance: CRANBERRY
  7. TROKENDI XR [Suspect]
     Active Substance: TOPIRAMATE
     Indication: EPILEPSY
  8. FISH OIL (OMEGA 3) [Concomitant]
  9. TROKENDI XR [Suspect]
     Active Substance: TOPIRAMATE
     Indication: STRESS
     Dosage: 100 MG, 1X/DAY
     Route: 048
     Dates: start: 2015, end: 201909

REACTIONS (2)
  - Unevaluable event [Unknown]
  - Seizure [Recovered/Resolved]

NARRATIVE: CASE EVENT DATE: 2019
